FAERS Safety Report 5031571-2 (Version None)
Quarter: 2006Q2

REPORT INFORMATION
  Report Type: 
  Country: None (occurrence: None)
  Receive Date: 20060621
  Receipt Date: 20060320
  Transmission Date: 20061013
  Serious: Yes (Other)
  Sender: FDA-Public Use
  Company Number: GB-GLAXOSMITHKLINE-B0416711A

PATIENT
  Age: 57 Year
  Sex: Male
  Weight: 78.7 kg

DRUGS (11)
  1. AVANDIA [Suspect]
     Indication: DIABETES MELLITUS NON-INSULIN-DEPENDENT
     Route: 048
     Dates: start: 20050810, end: 20060209
  2. GLICLAZIDE [Concomitant]
     Dosage: 160MG TWICE PER DAY
     Route: 048
  3. ATENOLOL [Concomitant]
     Dosage: 50MG TWICE PER DAY
     Route: 048
  4. RAMIPRIL [Concomitant]
     Dosage: 5MG TWICE PER DAY
  5. METFORMIN HCL [Concomitant]
     Dosage: 850MG TWICE PER DAY
  6. CANDESARTAN [Concomitant]
  7. FENOFIBRATE [Concomitant]
     Dosage: 267MG SINGLE DOSE
     Route: 048
  8. ALFACALCIDOL [Concomitant]
     Dosage: 500MG SINGLE DOSE
     Route: 048
  9. DOXAZOSIN [Concomitant]
     Dosage: 8MG PER DAY
  10. AMLODIPINE [Concomitant]
  11. UNSPECIFIED MEDICATION [Concomitant]
     Dosage: 80MG PER DAY

REACTIONS (8)
  - ATRIAL FIBRILLATION [None]
  - CARDIOMEGALY [None]
  - DYSPNOEA EXACERBATED [None]
  - DYSPNOEA EXERTIONAL [None]
  - OEDEMA PERIPHERAL [None]
  - ORTHOPNOEA [None]
  - RENAL FAILURE [None]
  - WEIGHT INCREASED [None]
